FAERS Safety Report 4819813-7 (Version None)
Quarter: 2005Q4

REPORT INFORMATION
  Report Type: 
  Country: None (occurrence: None)
  Receive Date: 20051102
  Receipt Date: 20051020
  Transmission Date: 20060501
  Serious: Yes (Other)
  Sender: FDA-Public Use
  Company Number: HQWYE964711OCT05

PATIENT
  Age: 56 Year
  Sex: Female

DRUGS (1)
  1. PANTOZOL (PANTOPRAZOLE) [Suspect]
     Dosage: TAKEN 5 MONTHS LATER

REACTIONS (7)
  - ANAPHYLACTOID REACTION [None]
  - ANGIONEUROTIC OEDEMA [None]
  - CONJUNCTIVITIS [None]
  - LABORATORY TEST ABNORMAL [None]
  - RESPIRATORY DISTRESS [None]
  - THROAT TIGHTNESS [None]
  - URTICARIA [None]
